FAERS Safety Report 9444699 (Version 3)
Quarter: 2013Q3

REPORT INFORMATION
  Report Type: Spontaneous
  Country: US (occurrence: None)
  Receive Date: 20130805
  Receipt Date: 20130807
  Transmission Date: 20140515
  Serious: Yes (Hospitalization)
  Sender: FDA-Public Use
  Company Number: FK201302886

PATIENT
  Sex: Female

DRUGS (8)
  1. PIPERACILLIN/TAZOBACTAM [Suspect]
     Indication: PRODUCT USED FOR UNKNOWN INDICATION
  2. DIOVAN (VALSARTAN) [Concomitant]
  3. KLONOPIN (CLONAZEPAM) (TABLETS) [Concomitant]
  4. VERAPAMIL [Concomitant]
  5. CLARITIN (GLICLAZIDE) [Concomitant]
  6. VENTOLIN (SALBUTAMOL) [Concomitant]
  7. LASIX (FUROSEMIDE) [Concomitant]
  8. ADVAIR (SERETIDE) [Concomitant]

REACTIONS (7)
  - Accidental exposure to product [None]
  - Chest pain [None]
  - Product container issue [None]
  - Bronchial hyperreactivity [None]
  - Laryngitis [None]
  - Tracheitis [None]
  - Oesophageal candidiasis [None]
